FAERS Safety Report 7081487-5 (Version None)
Quarter: 2010Q4

REPORT INFORMATION
  Report Type: 
  Country: None (occurrence: None)
  Receive Date: 20101103
  Receipt Date: 20101025
  Transmission Date: 20110411
  Serious: Yes (Hospitalization, Other)
  Sender: FDA-Public Use
  Company Number: US-ASTRAZENECA-2010SE50405

PATIENT
  Sex: Female

DRUGS (10)
  1. SEROQUEL [Suspect]
     Route: 048
  2. LIPITOR [Interacting]
  3. CLONAZEPAM [Interacting]
  4. DETROL [Interacting]
  5. CELEXA [Interacting]
  6. SYNTHROID [Interacting]
  7. GLYBURIDE [Interacting]
  8. OXCARBAZEPINE [Interacting]
  9. ZOLPIDEM [Interacting]
  10. UNSPECIFIED OVER-THE-COUNTER DIET DRUG [Interacting]
     Route: 065

REACTIONS (3)
  - COMA [None]
  - CONVULSION [None]
  - DRUG INTERACTION [None]
